FAERS Safety Report 8731420 (Version 2)
Quarter: 2012Q4

REPORT INFORMATION
  Report Type: Report from Study
  Country: CA (occurrence: CA)
  Receive Date: 20120820
  Receipt Date: 20120828
  Transmission Date: 20130627
  Serious: Yes (Other)
  Sender: FDA-Public Use
  Company Number: CA-JNJFOC-20120805505

PATIENT
  Sex: Male
  Weight: 68 kg

DRUGS (11)
  1. REMICADE [Suspect]
     Indication: PSORIASIS
     Route: 042
     Dates: start: 20111117
  2. CRESTOR [Concomitant]
     Route: 065
  3. PERINDOPRIL [Concomitant]
     Route: 065
  4. GLYBURIDE [Concomitant]
     Route: 065
  5. METFORMIN [Concomitant]
     Route: 065
  6. ROSIGLITAZONE [Concomitant]
     Route: 065
  7. ASA [Concomitant]
     Route: 065
  8. DICLOFENAC [Concomitant]
     Route: 065
  9. GABAPENTIN [Concomitant]
     Route: 065
  10. DOVOBET [Concomitant]
     Route: 065
  11. ALL OTHER THERAPEUTICS [Concomitant]
     Route: 065

REACTIONS (1)
  - Eyelid tumour [Unknown]
